FAERS Safety Report 23933232 (Version 1)
Quarter: 2024Q2

REPORT INFORMATION
  Report Type: Spontaneous
  Country: JP (occurrence: JP)
  Receive Date: 20240603
  Receipt Date: 20240603
  Transmission Date: 20240716
  Serious: Yes (Death, Life-Threatening, Other)
  Sender: FDA-Public Use
  Company Number: JP-ELI_LILLY_AND_COMPANY-JP202405016832

PATIENT
  Age: 59 Year
  Sex: Male
  Weight: 55 kg

DRUGS (11)
  1. CYRAMZA [Suspect]
     Active Substance: RAMUCIRUMAB
     Indication: Lung adenocarcinoma
     Dosage: 576 MG, SINGLE
     Route: 041
     Dates: start: 20240315, end: 20240315
  2. PEMETREXED [Suspect]
     Active Substance: PEMETREXED
     Indication: Lung adenocarcinoma
     Dosage: 800 MG, OTHER
     Dates: start: 20240105, end: 20240206
  3. DOCETAXEL [Suspect]
     Active Substance: DOCETAXEL\DOCETAXEL ANHYDROUS
     Indication: Lung adenocarcinoma
     Dosage: 92 MG, SINGLE
     Route: 041
     Dates: start: 20240315, end: 20240315
  4. IMFINZI [Suspect]
     Active Substance: DURVALUMAB
     Indication: Lung adenocarcinoma
     Dosage: 1500 MG, OTHER
     Dates: start: 20240105, end: 20240206
  5. IMJUDO [Suspect]
     Active Substance: TREMELIMUMAB\TREMELIMUMAB-ACTL
     Indication: Lung adenocarcinoma
     Dosage: 75 MG, OTHER
     Dates: start: 20240105, end: 20240206
  6. CARBOPLATIN [Concomitant]
     Active Substance: CARBOPLATIN
     Indication: Lung adenocarcinoma
     Dosage: 574 MG, OTHER
     Dates: start: 20240105, end: 20240206
  7. CALONAL [Concomitant]
     Active Substance: ACETAMINOPHEN
     Dosage: UNK
     Route: 048
     Dates: start: 20231208, end: 20240510
  8. REBAMIPIDE [Concomitant]
     Active Substance: REBAMIPIDE
     Route: 048
  9. SULPIRIDE [Concomitant]
     Active Substance: SULPIRIDE
     Route: 048
  10. ALPRAZOLAM [Concomitant]
     Active Substance: ALPRAZOLAM
     Route: 048
  11. PRIMPERAN [Concomitant]
     Active Substance: METOCLOPRAMIDE HYDROCHLORIDE
     Dosage: UNK
     Dates: start: 20240314

REACTIONS (3)
  - Malignant neoplasm progression [Fatal]
  - Interstitial lung disease [Recovering/Resolving]
  - Malignant neoplasm progression [Recovering/Resolving]

NARRATIVE: CASE EVENT DATE: 20240312
